FAERS Safety Report 8409873-9 (Version None)
Quarter: 2012Q2

REPORT INFORMATION
  Report Type: 
  Country: None (occurrence: None)
  Receive Date: 20120605
  Receipt Date: 20120529
  Transmission Date: 20120825
  Serious: No
  Sender: FDA-Public Use
  Company Number: US-PFIZER INC-2012127103

PATIENT
  Sex: Female
  Weight: 122 kg

DRUGS (15)
  1. TRAMADOL [Concomitant]
     Indication: RHEUMATOID ARTHRITIS
  2. HYDROCODONE [Concomitant]
     Indication: PAIN
     Dosage: 5/325, AS NEEDED
  3. ATENOLOL [Concomitant]
     Dosage: UNK
  4. VITAMIN D [Concomitant]
     Dosage: UNK
  5. DOXAZOSIN [Concomitant]
     Dosage: UNK
  6. HYDROXYCHLOROQUINE [Concomitant]
     Dosage: UNK
  7. GLUCOSAMINE CHONDROITIN PM [Concomitant]
     Dosage: UNK
  8. AMARYL [Concomitant]
     Dosage: UNK
  9. SUTENT [Suspect]
     Indication: METASTATIC RENAL CELL CARCINOMA
     Dosage: 50 MG, CYCLIC, (DAILY)
     Dates: start: 20120315
  10. TIZANIDINE [Concomitant]
     Dosage: UNK
  11. DIOVAN [Concomitant]
     Dosage: UNK
  12. ASPIRIN [Concomitant]
     Dosage: 81 MG, 1X/DAY(DAILY)
  13. PRAVASTATIN [Concomitant]
     Dosage: UNK
  14. LASIX [Concomitant]
     Dosage: UNK
  15. TRAMADOL [Concomitant]
     Indication: FIBROMYALGIA
     Dosage: UNK

REACTIONS (8)
  - HAIR COLOUR CHANGES [None]
  - PAIN IN EXTREMITY [None]
  - HYPERTENSION [None]
  - ALOPECIA [None]
  - FATIGUE [None]
  - SKIN DISCOLOURATION [None]
  - HYPERKERATOSIS [None]
  - STOMATITIS [None]
